FAERS Safety Report 8962302 (Version 1)
Quarter: 2012Q4

REPORT INFORMATION
  Report Type: Spontaneous
  Country: US (occurrence: None)
  Receive Date: 20121204
  Receipt Date: 20121204
  Transmission Date: 20130627
  Serious: Yes (Other)
  Sender: FDA-Public Use
  Company Number: DSA_61006_2012

PATIENT
  Age: 13 Year
  Sex: Female
  Weight: 79 kg

DRUGS (1)
  1. ACNEFREE CLEAR SKIN TREATMENTS GENTLE ACNE SCRUB [Suspect]
     Indication: ACNE
     Route: 061
     Dates: start: 20121118, end: 20121118

REACTIONS (4)
  - Eye swelling [None]
  - Swelling face [None]
  - Skin disorder [None]
  - Pruritus [None]
